FAERS Safety Report 6448365-3 (Version None)
Quarter: 2009Q4

REPORT INFORMATION
  Report Type: 
  Country: None (occurrence: None)
  Receive Date: 20091120
  Receipt Date: 20091106
  Transmission Date: 20100525
  Serious: Yes (Hospitalization)
  Sender: FDA-Public Use
  Company Number: PHHY2009GB40836

PATIENT
  Sex: Female

DRUGS (1)
  1. CLOZARIL [Suspect]
     Indication: SCHIZOPHRENIA
     Dosage: 250 MG, QD
     Route: 048
     Dates: start: 20041007

REACTIONS (4)
  - CHEST PAIN [None]
  - ELECTROCARDIOGRAM QT PROLONGED [None]
  - HEART RATE IRREGULAR [None]
  - SYNCOPE [None]
